FAERS Safety Report 8427982-5 (Version None)
Quarter: 2012Q2

REPORT INFORMATION
  Report Type: 
  Country: None (occurrence: None)
  Receive Date: 20120611
  Receipt Date: 20120605
  Transmission Date: 20120825
  Serious: Yes (Hospitalization, Other)
  Sender: FDA-Public Use
  Company Number: FR-PFIZER INC-2012134372

PATIENT
  Age: 72 Year
  Sex: Female

DRUGS (12)
  1. ARESTAL [Concomitant]
     Dosage: UNK
  2. AMISULPRIDE [Suspect]
     Indication: HALLUCINATION
     Dosage: 25 MG, 2X/DAY
     Route: 048
     Dates: start: 19900101, end: 20120120
  3. ZOLPIDEM [Suspect]
     Dosage: UNK
     Route: 048
     Dates: start: 19900101
  4. PANTOPRAZOLE [Concomitant]
     Dosage: UNK
  5. LOSARTAN [Concomitant]
     Dosage: UNK
  6. CITALOPRAM [Concomitant]
     Dosage: UNK
  7. TRIHEXYPHENIDYL HYDROCHLORIDE [Concomitant]
     Dosage: UNK
  8. ACETAMINOPHEN [Concomitant]
     Dosage: UNK
  9. TERCIAN [Suspect]
     Indication: HALLUCINATION
     Dosage: 0.5 DF A DAY
     Route: 048
     Dates: start: 19900101, end: 20120120
  10. ALUMINUM HYDROXIDE AND MAGNESIUM TRISILICATE [Concomitant]
     Dosage: UNK
  11. XANAX [Suspect]
     Dosage: UNK
     Route: 048
     Dates: start: 19900101, end: 20120202
  12. ACEBUTOLOL [Concomitant]
     Dosage: UNK

REACTIONS (7)
  - BALANCE DISORDER [None]
  - INJURY [None]
  - DYSARTHRIA [None]
  - CEREBRAL ISCHAEMIA [None]
  - DYSKINESIA [None]
  - FALL [None]
  - EXTRAPYRAMIDAL DISORDER [None]
